FAERS Safety Report 11822307 (Version 1)
Quarter: 2015Q4

REPORT INFORMATION
  Report Type: Spontaneous
  Country: US (occurrence: US)
  Receive Date: 20151210
  Receipt Date: 20151210
  Transmission Date: 20160305
  Serious: No
  Sender: FDA-Public Use
  Company Number: US-JNJFOC-20150204960

PATIENT
  Age: 80 Year
  Sex: Female

DRUGS (6)
  1. ZOCOR [Concomitant]
     Active Substance: SIMVASTATIN
  2. ASPIRIN. [Concomitant]
     Active Substance: ASPIRIN
  3. IMBRUVICA [Suspect]
     Active Substance: IBRUTINIB
     Indication: CHRONIC LYMPHOCYTIC LEUKAEMIA
     Route: 048
     Dates: start: 20150121
  4. ATENOLOL. [Concomitant]
     Active Substance: ATENOLOL
  5. AVALIDE [Concomitant]
     Active Substance: HYDROCHLOROTHIAZIDE\IRBESARTAN
  6. METFORMIN HCL [Concomitant]
     Active Substance: METFORMIN HYDROCHLORIDE

REACTIONS (19)
  - Skin disorder [Recovered/Resolved]
  - Diarrhoea [Recovered/Resolved]
  - Glossodynia [Recovering/Resolving]
  - Cheilitis [Unknown]
  - Malaise [Recovering/Resolving]
  - Skin lesion [Recovered/Resolved]
  - Fatigue [Recovered/Resolved]
  - Nasopharyngitis [Recovered/Resolved]
  - Oropharyngeal pain [Recovered/Resolved]
  - Abdominal discomfort [Recovering/Resolving]
  - Tenderness [Unknown]
  - Eye pain [Recovering/Resolving]
  - Asthenia [Recovered/Resolved]
  - Feeling cold [Recovered/Resolved]
  - Oral mucosal blistering [Recovered/Resolved]
  - White blood cell count increased [Recovered/Resolved]
  - Tongue discolouration [Unknown]
  - Acne [Recovered/Resolved]
  - Blood blister [Recovered/Resolved]

NARRATIVE: CASE EVENT DATE: 2015
